FAERS Safety Report 8465817 (Version 3)
Quarter: 2013Q1

REPORT INFORMATION
  Report Type: Spontaneous
  Country: IT (occurrence: IT)
  Receive Date: 20120319
  Receipt Date: 20130314
  Transmission Date: 20140127
  Serious: Yes (Other)
  Sender: FDA-Public Use
  Company Number: PHHY2012IT022202

PATIENT
  Age: 64 Year
  Sex: Male

DRUGS (2)
  1. ZOMETA [Suspect]
     Indication: RENAL NEOPLASM
     Dosage: 4 MG, QMO
     Route: 042
     Dates: start: 20100809, end: 20110826
  2. SUTENT [Concomitant]
     Indication: RENAL NEOPLASM
     Dosage: 37.5 MG, UNK
     Route: 048
     Dates: start: 20100728, end: 20110826

REACTIONS (1)
  - Osteonecrosis of jaw [Recovered/Resolved with Sequelae]
